FAERS Safety Report 12524835 (Version 2)
Quarter: 2016Q3

REPORT INFORMATION
  Report Type: Report from Study
  Country: US (occurrence: US)
  Receive Date: 20160704
  Receipt Date: 20160708
  Transmission Date: 20161109
  Serious: Yes (Hospitalization, Other)
  Sender: FDA-Public Use
  Company Number: US-GILEAD-2016-0221739

PATIENT
  Age: 11 Year
  Sex: Male
  Weight: 24 kg

DRUGS (3)
  1. AMBRISENTAN [Suspect]
     Active Substance: AMBRISENTAN
     Indication: UNIVENTRICULAR HEART
  2. AMBRISENTAN [Suspect]
     Active Substance: AMBRISENTAN
     Indication: PULMONARY HYPERTENSION
     Dosage: 5 MG, UNK
     Route: 065
     Dates: start: 20150723
  3. AMBRISENTAN [Suspect]
     Active Substance: AMBRISENTAN
     Indication: ATRIOVENTRICULAR SEPTAL DEFECT

REACTIONS (3)
  - Cardiac failure [Unknown]
  - Heart transplant [Recovered/Resolved]
  - Off label use [Recovered/Resolved]
